FAERS Safety Report 8066161-0 (Version None)
Quarter: 2012Q1

REPORT INFORMATION
  Report Type: 
  Country: None (occurrence: None)
  Receive Date: 20120124
  Receipt Date: 20111118
  Transmission Date: 20120608
  Serious: No
  Sender: FDA-Public Use
  Company Number: US-BRISTOL-MYERS SQUIBB COMPANY-16239758

PATIENT
  Age: 40 Year
  Sex: Female

DRUGS (2)
  1. PROZAC [Concomitant]
  2. ABILIFY [Suspect]

REACTIONS (1)
  - DIZZINESS [None]
